FAERS Safety Report 10232495 (Version 1)
Quarter: 2014Q2

REPORT INFORMATION
  Report Type: Spontaneous
  Country: GB (occurrence: GB)
  Receive Date: 20140612
  Receipt Date: 20140612
  Transmission Date: 20141212
  Serious: Yes (Other)
  Sender: FDA-Public Use
  Company Number: GB-BAYER-2014-083683

PATIENT
  Age: 37 Year
  Sex: Female
  Weight: 69.85 kg

DRUGS (1)
  1. MIRENA [Suspect]
     Indication: CONTRACEPTION
     Dosage: 20 MCG/24HR, CONT
     Route: 015
     Dates: start: 20120331, end: 20140521

REACTIONS (9)
  - Acne [Recovering/Resolving]
  - Anger [Recovering/Resolving]
  - Anxiety disorder [Recovering/Resolving]
  - Abdominal distension [Recovering/Resolving]
  - Depression [Recovering/Resolving]
  - Migraine with aura [Not Recovered/Not Resolved]
  - Mood swings [Recovering/Resolving]
  - Self esteem decreased [Recovering/Resolving]
  - Weight increased [Recovering/Resolving]
